FAERS Safety Report 21280466 (Version 2)
Quarter: 2024Q1

REPORT INFORMATION
  Report Type: Spontaneous
  Country: US (occurrence: US)
  Receive Date: 20220901
  Receipt Date: 20240213
  Transmission Date: 20240409
  Serious: No
  Sender: FDA-Public Use
  Company Number: US-PFIZER INC-202201110417

PATIENT
  Age: 52 Year
  Sex: Female

DRUGS (1)
  1. IBRANCE [Suspect]
     Active Substance: PALBOCICLIB
     Dosage: 100 MG, CYCLIC (TAKE 1 CAPSULE DAILY ON DAYS 1 THROUGH 21)

REACTIONS (3)
  - Laboratory test abnormal [Unknown]
  - Nasopharyngitis [Unknown]
  - White blood cell count decreased [Unknown]
